FAERS Safety Report 8201593-9 (Version None)
Quarter: 2012Q1

REPORT INFORMATION
  Report Type: 
  Country: None (occurrence: None)
  Receive Date: 20120308
  Receipt Date: 20120223
  Transmission Date: 20120608
  Serious: Yes (Hospitalization)
  Sender: FDA-Public Use
  Company Number: 2012CP000005

PATIENT
  Age: 77 Year
  Sex: Female

DRUGS (15)
  1. ZOLOFT [Suspect]
     Indication: DEPRESSION
     Dosage: 50 MG;1 DAY;PO
     Route: 048
     Dates: start: 20111110, end: 20111116
  2. PERINDOPRIL ERBUMINE [Suspect]
     Indication: HYPERTENSION
     Dosage: 5 MG;1 DAY;PO
     Route: 048
     Dates: start: 20111110, end: 20111116
  3. PERINDOPRIL ERBUMINE [Concomitant]
  4. VITAMINS /90003601/ [Concomitant]
  5. FLUINDIONE [Concomitant]
  6. TRAMADOL HCL [Concomitant]
  7. NICARDIPINE HYDROCHLORIDE [Concomitant]
  8. RISPERDAL [Suspect]
     Dosage: 1 MG;1 DAY;PO
     Route: 048
  9. TRAMADOL HYDROHLORIDE [Suspect]
     Dosage: 100 MG;2/1 DAY;PO
     Route: 048
     Dates: start: 20111110, end: 20111116
  10. ACETYLLEUCINE [Concomitant]
  11. SERTRALINE HYDROCHLORIDE [Concomitant]
  12. ACETAMINOPHEN [Suspect]
     Dates: start: 20111110, end: 20111111
  13. ACETAMINOPHEN [Suspect]
     Dosage: 1 GRAM; 1 DAY
     Dates: start: 20111112, end: 20111116
  14. LOVENOX [Suspect]
     Indication: THROMBOSIS PROPHYLAXIS
     Dosage: .7 ML;2/1 DAY;SC
     Route: 058
     Dates: start: 20111110, end: 20111116
  15. FUROSEMIDE [Concomitant]

REACTIONS (12)
  - PLATELET COUNT INCREASED [None]
  - METABOLIC ACIDOSIS [None]
  - HAEMATOMA [None]
  - HYPOTENSION [None]
  - BILIARY CYST [None]
  - TACHYARRHYTHMIA [None]
  - ALTERED STATE OF CONSCIOUSNESS [None]
  - HAEMOGLOBIN DECREASED [None]
  - SHOCK HAEMORRHAGIC [None]
  - RETROPERITONEAL HAEMATOMA [None]
  - ATRIAL FIBRILLATION [None]
  - RENAL FAILURE ACUTE [None]
